FAERS Safety Report 18067597 (Version 1)
Quarter: 2020Q3

REPORT INFORMATION
  Report Type: Spontaneous
  Country: US (occurrence: US)
  Receive Date: 20200724
  Receipt Date: 20200724
  Transmission Date: 20201103
  Serious: No
  Sender: FDA-Public Use
  Company Number: US-SA-2020SA186670

PATIENT

DRUGS (11)
  1. TIZANIDINE. [Concomitant]
     Active Substance: TIZANIDINE
  2. ANORO ELLIPTA [Concomitant]
     Active Substance: UMECLIDINIUM BROMIDE\VILANTEROL TRIFENATATE
  3. DUPIXENT [Suspect]
     Active Substance: DUPILUMAB
     Dosage: UNK
  4. METOPROLOL SUCCINATE. [Concomitant]
     Active Substance: METOPROLOL SUCCINATE
  5. DUPIXENT [Suspect]
     Active Substance: DUPILUMAB
     Indication: DERMATITIS ATOPIC
     Dosage: 300 MG, QOW
     Route: 058
     Dates: start: 20181206, end: 201912
  6. ALPRAZOLAM. [Concomitant]
     Active Substance: ALPRAZOLAM
  7. AZELASTINE. [Concomitant]
     Active Substance: AZELASTINE HYDROCHLORIDE
  8. ACETAMINOPHEN;HYDROCODONE [Concomitant]
     Active Substance: ACETAMINOPHEN\HYDROCODONE
  9. LIDOCAINE. [Concomitant]
     Active Substance: LIDOCAINE
  10. LISINOPRIL. [Concomitant]
     Active Substance: LISINOPRIL
  11. ROSUVASTATIN. [Concomitant]
     Active Substance: ROSUVASTATIN

REACTIONS (1)
  - Pigmentation disorder [Not Recovered/Not Resolved]

NARRATIVE: CASE EVENT DATE: 201912
